FAERS Safety Report 11731833 (Version 1)
Quarter: 2015Q4

REPORT INFORMATION
  Report Type: Spontaneous
  Country: CA (occurrence: CA)
  Receive Date: 20151113
  Receipt Date: 20151113
  Transmission Date: 20160304
  Serious: Yes (Other)
  Sender: FDA-Public Use
  Company Number: CA-TEVA-607812ACC

PATIENT
  Age: 51 Year
  Sex: Male
  Weight: 90.8 kg

DRUGS (3)
  1. CHAMPIX [Concomitant]
     Active Substance: VARENICLINE TARTRATE
  2. CLARITHROMYCIN. [Suspect]
     Active Substance: CLARITHROMYCIN
     Indication: PNEUMONIA
     Dosage: 1000 MILLIGRAM DAILY;
     Route: 048
  3. TARO-WARFARIN [Concomitant]
     Active Substance: WARFARIN

REACTIONS (6)
  - Decreased appetite [Recovered/Resolved]
  - Dyspepsia [Recovered/Resolved]
  - Fatigue [Recovered/Resolved]
  - Muscular weakness [Recovered/Resolved]
  - Activities of daily living impaired [Recovered/Resolved]
  - Dysgeusia [Recovered/Resolved]
